FAERS Safety Report 8623394-X (Version None)
Quarter: 2012Q3

REPORT INFORMATION
  Report Type: 
  Country: None (occurrence: None)
  Receive Date: 20120827
  Receipt Date: 20120816
  Transmission Date: 20120928
  Serious: No
  Sender: FDA-Public Use
  Company Number: US-VERTEX PHARMACEUTICAL INC.-2012-019865

PATIENT
  Sex: Female
  Weight: 62.585 kg

DRUGS (3)
  1. INCIVEK [Suspect]
     Indication: HEPATITIS C
     Dosage: 750 MG, TID
     Route: 048
     Dates: start: 20120805
  2. RIBAVIRIN [Concomitant]
     Indication: HEPATITIS C
     Dosage: 5 UNK, UNK
     Dates: start: 20120805
  3. PEGASYS [Concomitant]
     Indication: HEPATITIS C
     Dosage: 180 A?G, UNK
     Route: 058
     Dates: start: 20120805

REACTIONS (2)
  - VOMITING [None]
  - NAUSEA [None]
